FAERS Safety Report 5098306-9 (Version None)
Quarter: 2006Q3

REPORT INFORMATION
  Report Type: 
  Country: None (occurrence: None)
  Receive Date: 20060906
  Receipt Date: 20060629
  Transmission Date: 20061208
  Serious: No
  Sender: FDA-Public Use
  Company Number: US-GLAXOSMITHKLINE-A0610796A

PATIENT
  Age: 65 Year
  Sex: Male

DRUGS (9)
  1. REQUIP [Suspect]
     Indication: RESTLESS LEGS SYNDROME
     Dosage: 1TAB AT NIGHT
     Route: 048
     Dates: start: 20060627
  2. LIPITOR [Concomitant]
  3. GLIPIZIDE [Concomitant]
  4. LOPRESSOR [Concomitant]
  5. CARDIZEM [Concomitant]
  6. LASIX [Concomitant]
  7. DIGOXIN [Concomitant]
  8. SYNTHROID [Concomitant]
  9. COUMADIN [Concomitant]

REACTIONS (2)
  - DIZZINESS [None]
  - DRUG INEFFECTIVE [None]
